FAERS Safety Report 14266901 (Version 1)
Quarter: 2017Q4

REPORT INFORMATION
  Report Type: Report from Study
  Country: JP (occurrence: JP)
  Receive Date: 20171211
  Receipt Date: 20171211
  Transmission Date: 20180321
  Serious: Yes (Other)
  Sender: FDA-Public Use
  Company Number: JP-ROCHE-2034736

PATIENT
  Sex: Female

DRUGS (2)
  1. BEVACIZUMAB. [Suspect]
     Active Substance: BEVACIZUMAB
     Indication: BREAST CANCER METASTATIC
     Route: 042
  2. PACLITAXEL. [Suspect]
     Active Substance: PACLITAXEL
     Indication: BREAST CANCER METASTATIC
     Dosage: 60 TO 90 MG/M2
     Route: 042

REACTIONS (21)
  - Hypochromasia [Unknown]
  - Mouth haemorrhage [Unknown]
  - Blood bilirubin increased [Unknown]
  - Alanine aminotransferase increased [Unknown]
  - Thrombocytopenia [Unknown]
  - Arthralgia [Unknown]
  - Nausea [Unknown]
  - Epistaxis [Unknown]
  - Blood creatinine increased [Unknown]
  - Neutropenia [Unknown]
  - Leukopenia [Unknown]
  - Aspartate aminotransferase increased [Unknown]
  - Fatigue [Unknown]
  - Febrile neutropenia [Unknown]
  - Nail discolouration [Unknown]
  - Neuropathy peripheral [Unknown]
  - Myalgia [Unknown]
  - Onycholysis [Unknown]
  - Peripheral sensory neuropathy [Unknown]
  - Hypertension [Unknown]
  - Vomiting [Unknown]
